FAERS Safety Report 13726463 (Version 2)
Quarter: 2017Q3

REPORT INFORMATION
  Report Type: Spontaneous
  Country: FI (occurrence: FI)
  Receive Date: 20170707
  Receipt Date: 20170717
  Transmission Date: 20171127
  Serious: Yes (Hospitalization, Other)
  Sender: FDA-Public Use
  Company Number: FI-PFIZER INC-2017289337

PATIENT
  Age: 44 Year
  Sex: Female

DRUGS (12)
  1. ORGAMETRIL [Concomitant]
     Active Substance: LYNESTRENOL
     Dosage: 5 MG, UNK
     Route: 048
     Dates: end: 20170410
  2. PANADOL NOVUM [Concomitant]
     Dosage: 500 - 1000 MG
     Route: 048
  3. ZARZIO [Concomitant]
     Active Substance: FILGRASTIM
     Indication: FUNCTIONAL GASTROINTESTINAL DISORDER
     Dosage: 480 UG, UNK
     Route: 058
     Dates: start: 20170404, end: 20170408
  4. DOLAN [Concomitant]
     Active Substance: ACETAMINOPHEN\ORPHENADRINE CITRATE
     Dosage: 35/450 MG X 1-2, AS NEEDED
     Route: 048
  5. MELATONIN [Concomitant]
     Active Substance: MELATONIN
     Dosage: UNK
     Route: 048
  6. LAXOBERON [Concomitant]
     Active Substance: SODIUM PICOSULFATE
     Dosage: 10 GTT, AS NEEDED
     Route: 048
  7. DOCETAXEL. [Suspect]
     Active Substance: DOCETAXEL
     Indication: BREAST CANCER FEMALE
     Dosage: UNK (150 UNIT UNSPECIFIED)
     Dates: start: 20170330
  8. LEVOLAC [Concomitant]
     Active Substance: LACTULOSE
     Dosage: 20 ML, AS NEEDED
     Route: 048
  9. PEGORION [Concomitant]
     Active Substance: POLYETHYLENE GLYCOL 4000
     Dosage: 1 DF, UNK
     Route: 048
  10. TEMESTA [Concomitant]
     Active Substance: LORAZEPAM
     Indication: SLEEP DISORDER
     Dosage: 1 MG, AS NEEDED
     Route: 048
     Dates: start: 20170406
  11. TAVANIC [Concomitant]
     Active Substance: LEVOFLOXACIN
     Dosage: 500 MG, UNK
     Route: 048
     Dates: end: 20170412
  12. KETIPINOR [Concomitant]
     Active Substance: QUETIAPINE FUMARATE
     Dosage: 25 MG, UNK
     Route: 048
     Dates: end: 20170406

REACTIONS (6)
  - C-reactive protein increased [Unknown]
  - Functional gastrointestinal disorder [Recovering/Resolving]
  - Leukopenia [Unknown]
  - Acne [Unknown]
  - Pyrexia [Unknown]
  - Neutropenia [Unknown]

NARRATIVE: CASE EVENT DATE: 201704
